FAERS Safety Report 8203772-3 (Version None)
Quarter: 2012Q1

REPORT INFORMATION
  Report Type: 
  Country: None (occurrence: None)
  Receive Date: 20120313
  Receipt Date: 20120302
  Transmission Date: 20120608
  Serious: Yes (Other)
  Sender: FDA-Public Use
  Company Number: US-BAYER-2011-061361

PATIENT
  Age: 28 Year
  Sex: Female
  Weight: 86.168 kg

DRUGS (8)
  1. YAZ [Suspect]
     Indication: CONTRACEPTION
     Dosage: UNK
     Dates: start: 20090101
  2. ERRIN [Concomitant]
     Dosage: UNK
     Dates: start: 20071203
  3. LORTAB [Concomitant]
     Dosage: UNK
     Dates: start: 20060801
  4. DROSPIRENONE AND ETHINYL ESTRADIOL [Suspect]
     Indication: CONTRACEPTION
     Dosage: UNK
     Dates: start: 20080101, end: 20090101
  5. MICRONOR [Concomitant]
     Dosage: UNK
     Dates: start: 20071203
  6. YASMIN [Suspect]
     Indication: CONTRACEPTION
     Dosage: UNK
     Dates: start: 20050101, end: 20080101
  7. ERRIN [Concomitant]
     Dosage: UNK
     Dates: start: 20080225
  8. AMOXICILLIN AND CLAVULANATE POTASSIUM [Concomitant]
     Indication: PNEUMONIA
     Dosage: UNK
     Dates: start: 20100801, end: 20100901

REACTIONS (8)
  - NAUSEA [None]
  - DIARRHOEA [None]
  - ABDOMINAL PAIN UPPER [None]
  - HYPOAESTHESIA [None]
  - BILIARY COLIC [None]
  - CHOLECYSTITIS ACUTE [None]
  - MIGRAINE [None]
  - WEIGHT LOSS POOR [None]
